FAERS Safety Report 6053867-8 (Version None)
Quarter: 2009Q1

REPORT INFORMATION
  Report Type: 
  Country: None (occurrence: None)
  Receive Date: 20090123
  Receipt Date: 20090115
  Transmission Date: 20090719
  Serious: Yes (Hospitalization)
  Sender: FDA-Public Use
  Company Number: CHNY2009JP00571

PATIENT
  Sex: Female

DRUGS (1)
  1. NICOTINE [Suspect]
     Indication: SMOKING CESSATION THERAPY
     Dosage: 14 MG, QD, TRANSDERMAL
     Route: 062
     Dates: start: 20090114, end: 20090114

REACTIONS (5)
  - CHILLS [None]
  - DIZZINESS POSTURAL [None]
  - HYPOAESTHESIA [None]
  - NAUSEA [None]
  - VOMITING [None]
